FAERS Safety Report 5151219-6 (Version None)
Quarter: 2006Q4

REPORT INFORMATION
  Report Type: 
  Country: None (occurrence: None)
  Receive Date: 20061113
  Receipt Date: 20061113
  Transmission Date: 20070319
  Serious: Yes (Death)
  Sender: FDA-Public Use
  Company Number: None

PATIENT
  Age: 67 Year
  Sex: Female

DRUGS (2)
  1. AXERT [Suspect]
     Indication: MIGRAINE
     Dosage: PRN PO
     Route: 048
  2. VERAPAMIL 120 SR DAILY [Suspect]
     Indication: MIGRAINE
     Dosage: DAILY PO
     Route: 048

REACTIONS (1)
  - COLITIS ISCHAEMIC [None]
